FAERS Safety Report 19248264 (Version 2)
Quarter: 2023Q2

REPORT INFORMATION
  Report Type: Spontaneous
  Country: US (occurrence: US)
  Receive Date: 20210512
  Receipt Date: 20230526
  Transmission Date: 20230721
  Serious: Yes (Other)
  Sender: FDA-Public Use
  Company Number: US-UCBSA-2020029196

PATIENT
  Sex: Female
  Weight: 70.295 kg

DRUGS (1)
  1. CIMZIA [Suspect]
     Active Substance: CERTOLIZUMAB PEGOL
     Indication: Psoriatic arthropathy
     Dosage: 400MG EVERY 4 WEEK UNDER THE SKIN OR 200 MG EVERY 2 WEEKS
     Dates: start: 20200708

REACTIONS (6)
  - Psoriatic arthropathy [Unknown]
  - Injection site mass [Unknown]
  - Injection site swelling [Recovered/Resolved]
  - Injection site erythema [Recovered/Resolved]
  - Adverse drug reaction [Unknown]
  - Drug ineffective [Unknown]

NARRATIVE: CASE EVENT DATE: 20200101
